FAERS Safety Report 16420889 (Version 1)
Quarter: 2019Q2

REPORT INFORMATION
  Report Type: Spontaneous
  Country: US (occurrence: US)
  Receive Date: 20190612
  Receipt Date: 20190612
  Transmission Date: 20190711
  Serious: No
  Sender: FDA-Public Use
  Company Number: US-US WORLDMEDS, LLC-USW201905-001004

PATIENT
  Sex: Male

DRUGS (7)
  1. LUCEMYRA [Suspect]
     Active Substance: LOFEXIDINE
     Indication: PRODUCT USED FOR UNKNOWN INDICATION
     Dates: start: 20190511
  2. LUCEMYRA [Suspect]
     Active Substance: LOFEXIDINE
     Dosage: 1 TABLET AT 6:00 AM, 1 TABLET AT 12:00 PM, 3 TABLETS AT 6:00 PM
     Dates: start: 20190513
  3. LUCEMYRA [Suspect]
     Active Substance: LOFEXIDINE
     Dosage: 3 TABLETS FOUR TIMES A DAY (12 AM, 6 AM, 12 PM AND 6 PM) AND CONTINUED ON 15/MAY/2019 UNTIL HIS 12 P
     Dates: start: 20190514
  4. LUCEMYRA [Suspect]
     Active Substance: LOFEXIDINE
     Dates: start: 20190513
  5. LUCEMYRA [Suspect]
     Active Substance: LOFEXIDINE
     Dates: start: 20190512
  6. LUCEMYRA [Suspect]
     Active Substance: LOFEXIDINE
     Dosage: FOUR TIMES A DAY (12 AM, 6 AM, 12 PM AND 6 PM) UNTIL HIS 12 PM
     Dates: start: 20190515
  7. LISINOPRIL HCTZ [Concomitant]
     Active Substance: HYDROCHLOROTHIAZIDE\LISINOPRIL
     Indication: BLOOD PRESSURE MEASUREMENT
     Dosage: 10 MG-12.5 MG ONCE A DAY AT 7:00 AM

REACTIONS (8)
  - Withdrawal syndrome [Recovered/Resolved]
  - Pain in extremity [Recovered/Resolved]
  - Feeling hot [Recovered/Resolved]
  - Dizziness [Recovered/Resolved]
  - Treatment noncompliance [Unknown]
  - Abdominal pain upper [Recovered/Resolved]
  - Hypotension [Recovered/Resolved]
  - Night sweats [Recovered/Resolved]

NARRATIVE: CASE EVENT DATE: 20190511
